FAERS Safety Report 7199373-9 (Version None)
Quarter: 2010Q4

REPORT INFORMATION
  Report Type: 
  Country: None (occurrence: None)
  Receive Date: 20101215
  Receipt Date: 20101207
  Transmission Date: 20110411
  Serious: No
  Sender: FDA-Public Use
  Company Number: 2010SP055036

PATIENT
  Age: 50 Year
  Sex: Female
  Weight: 85 kg

DRUGS (6)
  1. ESLAX (ROCURONIUM BROMIDE /01245702/) [Suspect]
     Indication: NEUROMUSCULAR BLOCKING THERAPY
     Dosage: 80 MG; ONCE; IV, 10 MG; ; IV, 5 MG; ; IV
     Route: 042
     Dates: start: 20100225, end: 20100225
  2. DIPRIVAN [Concomitant]
  3. FENTANYL [Concomitant]
  4. SEVOFLURANE [Concomitant]
  5. ATROPINE [Concomitant]
  6. NEOSTIGMINE [Concomitant]

REACTIONS (1)
  - NEUROMUSCULAR BLOCK PROLONGED [None]
